FAERS Safety Report 19777531 (Version 2)
Quarter: 2021Q3

REPORT INFORMATION
  Report Type: Spontaneous
  Country: NL (occurrence: NL)
  Receive Date: 20210902
  Receipt Date: 20210913
  Transmission Date: 20211014
  Serious: Yes (Other)
  Sender: FDA-Public Use
  Company Number: NL-AUROBINDO-AUR-APL-2021-037003

PATIENT
  Age: 18 Year
  Sex: Female
  Weight: 46 kg

DRUGS (6)
  1. NUVARING [Concomitant]
     Active Substance: ETHINYL ESTRADIOL\ETONOGESTREL
     Indication: PRODUCT USED FOR UNKNOWN INDICATION
     Dosage: 15/120 MICROGRAM/HOUR
     Route: 065
  2. JANSSEN COVID?19 VACCINE [Suspect]
     Active Substance: AD26.COV2.S
     Indication: COVID-19 IMMUNISATION
     Dosage: 1 DOSAGE FORM
     Route: 065
     Dates: start: 20210705
  3. TRAMADOL. [Suspect]
     Active Substance: TRAMADOL
     Indication: PRODUCT USED FOR UNKNOWN INDICATION
     Dosage: 20 DROP, FOUR TIMES/DAY
     Route: 065
     Dates: start: 20210626
  4. PARACETAMOL 1000 MG SUPPOSITORY [Suspect]
     Active Substance: ACETAMINOPHEN
     Indication: PRODUCT USED FOR UNKNOWN INDICATION
     Dosage: 1000 MILLIGRAM, FOUR TIMES/DAY
     Route: 065
     Dates: start: 20210626
  5. TRAMADOL/ PARACETAMOL 37.5MG/325MG FILM?COATED TABLE [Suspect]
     Active Substance: ACETAMINOPHEN\TRAMADOL
     Indication: PRODUCT USED FOR UNKNOWN INDICATION
     Dosage: 20 DROPS OF TRAMADOL AND 1000MG PARACETAMOL, BOTH 4X A DAY
     Route: 065
     Dates: start: 20210626
  6. IBUPROFEN. [Concomitant]
     Active Substance: IBUPROFEN
     Indication: PRODUCT USED FOR UNKNOWN INDICATION
     Dosage: 600 MILLIGRAM, 3 TIMES A DAY
     Route: 065

REACTIONS (7)
  - Hyperpyrexia [Recovered/Resolved]
  - Chills [Recovered/Resolved]
  - Fatigue [Recovering/Resolving]
  - Myalgia [Recovered/Resolved]
  - Headache [Recovered/Resolved]
  - Malaise [Recovering/Resolving]
  - Nausea [Recovered/Resolved]

NARRATIVE: CASE EVENT DATE: 20210705
